FAERS Safety Report 6612249-8 (Version None)
Quarter: 2010Q1

REPORT INFORMATION
  Report Type: 
  Country: None (occurrence: None)
  Receive Date: 20100303
  Receipt Date: 20100224
  Transmission Date: 20100710
  Serious: Yes (Death, Hospitalization)
  Sender: FDA-Public Use
  Company Number: ES-CELGENEUS-144-C5013-07111410

PATIENT
  Sex: Male
  Weight: 55 kg

DRUGS (9)
  1. CC-5013 [Suspect]
     Indication: MULTIPLE MYELOMA
     Route: 048
     Dates: start: 20071116, end: 20071125
  2. CC-5013 [Suspect]
     Route: 048
     Dates: start: 20071215, end: 20071217
  3. DEXAMETHASONE [Suspect]
     Indication: MULTIPLE MYELOMA
     Route: 048
     Dates: start: 20071116, end: 20071125
  4. DEXAMETHASONE [Suspect]
     Route: 065
     Dates: start: 20071215, end: 20071217
  5. NEUPOGEN [Concomitant]
     Indication: NEUTROPENIA
     Route: 058
     Dates: start: 20071116, end: 20071125
  6. NEUPOGEN [Concomitant]
     Indication: MULTIPLE MYELOMA
     Route: 058
     Dates: start: 20071215, end: 20071217
  7. VENTOLIN [Concomitant]
     Indication: DRUG USE FOR UNKNOWN INDICATION
     Route: 065
  8. ATROVENT [Concomitant]
     Indication: DRUG USE FOR UNKNOWN INDICATION
     Route: 065
  9. CODEISAN [Concomitant]
     Indication: DRUG USE FOR UNKNOWN INDICATION
     Route: 065

REACTIONS (4)
  - ACUTE PULMONARY OEDEMA [None]
  - CARDIAC FAILURE [None]
  - LEGIONELLA INFECTION [None]
  - MULTIPLE MYELOMA [None]
